FAERS Safety Report 5977257-9 (Version None)
Quarter: 2008Q4

REPORT INFORMATION
  Report Type: 
  Country: None (occurrence: None)
  Receive Date: 20081203
  Receipt Date: 20081118
  Transmission Date: 20090506
  Serious: No
  Sender: FDA-Public Use
  Company Number: US-BAYER-200838925NA

PATIENT
  Age: 60 Year
  Sex: Female

DRUGS (6)
  1. ULTRAVIST 300 [Suspect]
     Indication: COMPUTERISED TOMOGRAM ABDOMEN
     Dosage: TOTAL DAILY DOSE: 150 ML  UNIT DOSE: 300 MG
     Route: 042
     Dates: start: 20081117, end: 20081117
  2. PROZAC [Concomitant]
  3. LASIX [Concomitant]
  4. SYNTHROID [Concomitant]
  5. SPIRONOLACTONE [Concomitant]
  6. ORAL CONTRAST [Concomitant]
     Indication: COMPUTERISED TOMOGRAM ABDOMEN
     Route: 048
     Dates: start: 20081117, end: 20081117

REACTIONS (1)
  - PRURITUS [None]
